FAERS Safety Report 14218935 (Version 2)
Quarter: 2024Q2

REPORT INFORMATION
  Report Type: Spontaneous
  Country: US (occurrence: US)
  Receive Date: 20171123
  Receipt Date: 20240423
  Transmission Date: 20240716
  Serious: Yes (Other)
  Sender: FDA-Public Use
  Company Number: US-JNJFOC-20171011354

PATIENT
  Age: 12 Year
  Sex: Male

DRUGS (4)
  1. RISPERDAL [Suspect]
     Active Substance: RISPERIDONE
     Indication: Sleep disorder
     Dosage: VARYING DOSES (0.25, 0.5, 1, 1.5 AND 2 MG) AND FREQUENCIES (ONCE, TWICE AND THRICE DAILY)
     Route: 048
     Dates: start: 200403, end: 200806
  2. RISPERDAL [Suspect]
     Active Substance: RISPERIDONE
     Indication: Bipolar disorder
  3. RISPERDAL [Suspect]
     Active Substance: RISPERIDONE
     Indication: Psychotic disorder
  4. RISPERDAL [Suspect]
     Active Substance: RISPERIDONE
     Indication: Drug therapy

REACTIONS (7)
  - Tardive dyskinesia [Recovering/Resolving]
  - Withdrawal syndrome [Recovering/Resolving]
  - Akathisia [Recovering/Resolving]
  - Emotional disorder [Unknown]
  - Gynaecomastia [Unknown]
  - Sedation [Unknown]
  - Off label use [Unknown]

NARRATIVE: CASE EVENT DATE: 20060301
